FAERS Safety Report 10727546 (Version 1)
Quarter: 2015Q1

REPORT INFORMATION
  Report Type: Report from Study
  Country: US (occurrence: US)
  Receive Date: 20150121
  Receipt Date: 20150121
  Transmission Date: 20150721
  Serious: Yes (Other)
  Sender: FDA-Public Use
  Company Number: US-GILEAD-2015-0132602

PATIENT
  Age: 61 Year
  Sex: Female

DRUGS (1)
  1. TENOFOVIR DISOPROXIL FUMARATE [Suspect]
     Active Substance: TENOFOVIR DISOPROXIL FUMARATE
     Indication: HEPATITIS B
     Dosage: 300 MG, UNK
     Route: 048
     Dates: start: 20100501

REACTIONS (1)
  - Non-Hodgkin^s lymphoma stage IV [Unknown]

NARRATIVE: CASE EVENT DATE: 201105
